FAERS Safety Report 4581834-X (Version None)
Quarter: 2005Q1

REPORT INFORMATION
  Report Type: 
  Country: None (occurrence: None)
  Receive Date: 20050214
  Receipt Date: 20040316
  Transmission Date: 20050727
  Serious: Yes (Other)
  Sender: FDA-Public Use
  Company Number: US-GLAXOSMITHKLINE-A0502972A

PATIENT
  Sex: Male

DRUGS (5)
  1. LAMICTAL [Suspect]
     Indication: BIPOLAR DISORDER
     Dosage: 100MG PER DAY
     Route: 048
     Dates: start: 20040101
  2. NIACIN [Concomitant]
  3. VITAMIN C [Concomitant]
  4. DEPAKOTE [Concomitant]
  5. LITHIUM [Concomitant]

REACTIONS (2)
  - FLUSHING [None]
  - STEVENS-JOHNSON SYNDROME [None]
